FAERS Safety Report 4479609-5 (Version None)
Quarter: 2004Q4

REPORT INFORMATION
  Report Type: 
  Country: None (occurrence: None)
  Receive Date: 20041015
  Receipt Date: 20040930
  Transmission Date: 20050328
  Serious: Yes (Hospitalization)
  Sender: FDA-Public Use
  Company Number: 203685

PATIENT
  Age: 60 Year
  Sex: Female

DRUGS (5)
  1. AVONEX [Suspect]
     Indication: MULTIPLE SCLEROSIS
     Dosage: 30 MCG QW IM
     Route: 030
  2. PREVACID [Concomitant]
  3. LIPITOR [Concomitant]
  4. MYSOLINE ^ICI^ [Concomitant]
  5. DIPENTUM [Concomitant]

REACTIONS (2)
  - FALL [None]
  - HIP FRACTURE [None]
